FAERS Safety Report 21462701 (Version 1)
Quarter: 2022Q4

REPORT INFORMATION
  Report Type: Report from Study
  Country: US (occurrence: US)
  Receive Date: 20221017
  Receipt Date: 20221017
  Transmission Date: 20230113
  Serious: Yes (Hospitalization, Other)
  Sender: FDA-Public Use
  Company Number: US-BoehringerIngelheim-2020-BI-024838

PATIENT
  Sex: Male

DRUGS (2)
  1. OFEV [Suspect]
     Active Substance: NINTEDANIB
     Indication: Pulmonary fibrosis
     Route: 048
     Dates: start: 20200424
  2. OFEV [Suspect]
     Active Substance: NINTEDANIB
     Dosage: THERAPY START DATE: -OCT-2020
     Route: 048

REACTIONS (24)
  - Pulmonary embolism [Unknown]
  - Pleural effusion [Unknown]
  - Peripheral swelling [Unknown]
  - Hypertension [Unknown]
  - Syncope [Unknown]
  - Pericardial effusion [Unknown]
  - Dyspnoea [Unknown]
  - Nausea [Recovered/Resolved]
  - Weight decreased [Recovered/Resolved]
  - Abnormal dreams [Recovered/Resolved]
  - Pruritus [Unknown]
  - Fatigue [Unknown]
  - Taste disorder [Unknown]
  - Insomnia [Unknown]
  - Hallucination [Unknown]
  - Asthenia [Unknown]
  - Cough [Not Recovered/Not Resolved]
  - Weight decreased [Unknown]
  - Medication error [Unknown]
  - Ageusia [Not Recovered/Not Resolved]
  - Anosmia [Unknown]
  - Decreased appetite [Unknown]
  - Nausea [Unknown]
  - Abdominal discomfort [Unknown]
